FAERS Safety Report 4918479-5 (Version None)
Quarter: 2006Q1

REPORT INFORMATION
  Report Type: 
  Country: None (occurrence: None)
  Receive Date: 20060222
  Receipt Date: 20060210
  Transmission Date: 20060701
  Serious: Yes (Hospitalization, Other)
  Sender: FDA-Public Use
  Company Number: US-JNJFOC-20060203382

PATIENT
  Sex: Female
  Weight: 43.09 kg

DRUGS (6)
  1. FENTANYL [Suspect]
     Route: 062
  2. LEVAQUIN [Suspect]
     Indication: PREMEDICATION
     Route: 042
  3. NORCO [Concomitant]
  4. NORCO [Concomitant]
     Indication: PAIN
  5. MIRALAX [Concomitant]
  6. NORFLEX [Concomitant]
     Indication: PAIN
     Dosage: AS NEEDED

REACTIONS (9)
  - APPLICATION SITE DRYNESS [None]
  - APPLICATION SITE EXFOLIATION [None]
  - APPLICATION SITE PAIN [None]
  - APPLICATION SITE PRURITUS [None]
  - BILE DUCT OBSTRUCTION [None]
  - GASTROOESOPHAGEAL REFLUX DISEASE [None]
  - INJECTION SITE ERYTHEMA [None]
  - PANCREATITIS [None]
  - TOOTH INFECTION [None]
